FAERS Safety Report 8168533-2 (Version None)
Quarter: 2012Q1

REPORT INFORMATION
  Report Type: 
  Country: None (occurrence: None)
  Receive Date: 20120227
  Receipt Date: 20120227
  Transmission Date: 20120608
  Serious: Yes (Other)
  Sender: FDA-Public Use
  Company Number: None

PATIENT
  Age: 31 Year
  Sex: Female
  Weight: 95.254 kg

DRUGS (2)
  1. CLOTRIMAZOLE AND BETAMETHASONE DIPROPIONATE [Suspect]
     Indication: FUNGAL INFECTION
     Dosage: 0.75 GRAMS
     Route: 061
     Dates: start: 20120217, end: 20120225
  2. CLOTRIMAZOLE AND BETAMETHASONE DIPROPIONATE [Suspect]
     Indication: TINEA PEDIS
     Dosage: 0.75 GRAMS
     Route: 061
     Dates: start: 20120217, end: 20120225

REACTIONS (5)
  - DRY SKIN [None]
  - PRURITUS [None]
  - SKIN EXFOLIATION [None]
  - SKIN DISORDER [None]
  - ERYTHEMA [None]
